FAERS Safety Report 7803519-6 (Version None)
Quarter: 2011Q4

REPORT INFORMATION
  Report Type: 
  Country: None (occurrence: None)
  Receive Date: 20111008
  Receipt Date: 20111003
  Transmission Date: 20120403
  Serious: Yes (Death, Other)
  Sender: FDA-Public Use
  Company Number: US-ASTRAZENECA-2011SE58966

PATIENT
  Age: 73 Year
  Sex: Male

DRUGS (3)
  1. LYRICA [Suspect]
     Indication: HYPOAESTHESIA
     Route: 048
     Dates: start: 20110613, end: 20110616
  2. ZESTORETIC [Suspect]
     Indication: HYPERTENSION
     Route: 048
  3. AMARYL [Suspect]
     Indication: DIABETES MELLITUS
     Route: 065

REACTIONS (2)
  - HYPOAESTHESIA [None]
  - CARDIO-RESPIRATORY ARREST [None]
